FAERS Safety Report 6307593-8 (Version None)
Quarter: 2009Q3

REPORT INFORMATION
  Report Type: 
  Country: None (occurrence: None)
  Receive Date: 20090813
  Receipt Date: 20090806
  Transmission Date: 20100115
  Serious: Yes (Hospitalization)
  Sender: FDA-Public Use
  Company Number: JP-ASTRAZENECA-2009SE05034

PATIENT
  Age: 28990 Day
  Sex: Female
  Weight: 33 kg

DRUGS (4)
  1. BLOPRESS [Suspect]
     Indication: HYPERTENSION
     Route: 048
     Dates: end: 20090608
  2. BLOPRESS [Suspect]
     Route: 048
     Dates: start: 20090611, end: 20090613
  3. BLOPRESS [Suspect]
     Route: 048
     Dates: start: 20090617, end: 20090621
  4. (SWERTIA HERB) [Suspect]
     Route: 065

REACTIONS (2)
  - HYPONATRAEMIA [None]
  - POLYURIA [None]
